FAERS Safety Report 6251267-9 (Version None)
Quarter: 2009Q2

REPORT INFORMATION
  Report Type: 
  Country: None (occurrence: None)
  Receive Date: 20090630
  Receipt Date: 20090619
  Transmission Date: 20091009
  Serious: Yes (Other)
  Sender: FDA-Public Use
  Company Number: GB-JNJFOC-20090607953

PATIENT
  Age: 72 Year
  Sex: Female
  Weight: 81 kg

DRUGS (7)
  1. REMICADE [Suspect]
     Indication: RHEUMATOID ARTHRITIS
     Route: 042
  2. METHOTREXATE [Concomitant]
  3. AXID [Concomitant]
  4. ACETAMINOPHEN WITH PROPOXYPHENE HCL TAB [Concomitant]
  5. FOLIC ACID [Concomitant]
  6. PREMPAK C [Concomitant]
  7. RHEUMOX [Concomitant]

REACTIONS (1)
  - SKIN CANCER [None]
